FAERS Safety Report 4599922-0 (Version None)
Quarter: 2005Q1

REPORT INFORMATION
  Report Type: 
  Country: None (occurrence: None)
  Receive Date: 20050303
  Receipt Date: 20050211
  Transmission Date: 20050727
  Serious: Yes (Disabling)
  Sender: FDA-Public Use
  Company Number: FR_050205822

PATIENT
  Age: 57 Year
  Sex: Female

DRUGS (3)
  1. GEMZAR [Suspect]
  2. HERCEPTIN [Concomitant]
  3. ZOMETA [Concomitant]

REACTIONS (9)
  - CHEMICAL POISONING [None]
  - GINGIVAL DISORDER [None]
  - IMPAIRED HEALING [None]
  - INTERNATIONAL NORMALISED RATIO INCREASED [None]
  - JAW DISORDER [None]
  - LYMPHADENOPATHY [None]
  - ORAL SOFT TISSUE DISORDER [None]
  - OSTEONECROSIS [None]
  - TOOTH LOSS [None]
